FAERS Safety Report 4621332-8 (Version None)
Quarter: 2005Q1

REPORT INFORMATION
  Report Type: 
  Country: None (occurrence: None)
  Receive Date: 20050324
  Receipt Date: 20050324
  Transmission Date: 20050727
  Serious: Yes (Other)
  Sender: FDA-Public Use
  Company Number: None

PATIENT
  Sex: Female

DRUGS (1)
  1. AUGMENTIN '250' [Suspect]
     Dosage: 250 MG BID ORAL
     Route: 048
     Dates: start: 20030514, end: 20030515

REACTIONS (1)
  - RASH [None]
